FAERS Safety Report 6003333-0 (Version None)
Quarter: 2008Q4

REPORT INFORMATION
  Report Type: 
  Country: None (occurrence: None)
  Receive Date: 20081212
  Receipt Date: 20081204
  Transmission Date: 20090506
  Serious: Yes (Hospitalization)
  Sender: FDA-Public Use
  Company Number: 2008SP024833

PATIENT
  Age: 11 Month
  Sex: Male

DRUGS (6)
  1. HYDROCORTISONE [Suspect]
     Indication: DERMATITIS ATOPIC
     Dosage: 0.1 PCT;
  2. BETAMETHASONE DIPROPIONATE [Suspect]
     Indication: DERMATITIS ATOPIC
     Dosage: 0.05 PCT
  3. MOMETASONE FUROATE [Suspect]
     Indication: DERMATITIS ATOPIC
  4. BETAMETHASONE VALERATE [Suspect]
     Indication: DERMATITIS ATOPIC
  5. DESONIDE [Suspect]
     Indication: DERMATITIS ATOPIC
  6. CLOBETASOL (CLOBETASOL) [Suspect]
     Indication: DERMATITIS ATOPIC

REACTIONS (3)
  - CUSHING'S SYNDROME [None]
  - HYPERTENSION [None]
  - INTENTIONAL DRUG MISUSE [None]
